FAERS Safety Report 6013684-1 (Version None)
Quarter: 2008Q4

REPORT INFORMATION
  Report Type: 
  Country: None (occurrence: None)
  Receive Date: 20081219
  Receipt Date: 20081212
  Transmission Date: 20090506
  Serious: Yes (Hospitalization)
  Sender: FDA-Public Use
  Company Number: A0724618A

PATIENT
  Age: 45 Year
  Sex: Male
  Weight: 109.1 kg

DRUGS (10)
  1. AVANDIA [Suspect]
     Dosage: 2MG PER DAY
     Route: 048
     Dates: start: 20051201
  2. AVANDAMET [Suspect]
     Route: 048
     Dates: start: 20040601, end: 20041201
  3. ACTOS [Concomitant]
  4. GLUCOPHAGE [Concomitant]
  5. METFORMIN HCL [Concomitant]
     Dates: start: 20030401, end: 20030501
  6. AMARYL [Concomitant]
  7. COREG [Concomitant]
  8. WELLBUTRIN [Concomitant]
  9. PRAVACHOL [Concomitant]
  10. ADVIL LIQUI-GELS [Concomitant]

REACTIONS (4)
  - CARDIAC DISORDER [None]
  - CARDIAC FAILURE CONGESTIVE [None]
  - CEREBROVASCULAR DISORDER [None]
  - CONDITION AGGRAVATED [None]
